FAERS Safety Report 14881368 (Version 2)
Quarter: 2018Q2

REPORT INFORMATION
  Report Type: Spontaneous
  Country: US (occurrence: US)
  Receive Date: 20180511
  Receipt Date: 20180516
  Transmission Date: 20180711
  Serious: Yes (Other)
  Sender: FDA-Public Use
  Company Number: US-SA-2018SA129694

PATIENT
  Age: 26 Year
  Sex: Male

DRUGS (2)
  1. SELSUN BLUE ACTIVE 3-IN-1 [Suspect]
     Active Substance: SALICYLIC ACID
     Dosage: FORM: SHAMPOO CONDITIONER
     Route: 003
     Dates: start: 20180408
  2. SELSUN BLUE MEDICATED [Suspect]
     Active Substance: SELENIUM SULFIDE
     Route: 003

REACTIONS (2)
  - Skin odour abnormal [Not Recovered/Not Resolved]
  - Respiratory tract infection [Unknown]

NARRATIVE: CASE EVENT DATE: 20180408
